FAERS Safety Report 9035903 (Version 1)
Quarter: 2013Q1

REPORT INFORMATION
  Report Type: Spontaneous
  Country: US (occurrence: US)
  Receive Date: 20130129
  Receipt Date: 20130129
  Transmission Date: 20140127
  Serious: No
  Sender: FDA-Public Use
  Company Number: US-ABBOTT-12P-163-0923051-00

PATIENT
  Age: 58 None
  Sex: Female
  Weight: 59.02 kg

DRUGS (2)
  1. HUMIRA 40 MG/0.8 ML PEN [Suspect]
     Indication: RHEUMATOID ARTHRITIS
     Dates: start: 201106
  2. NOVOCAINE [Suspect]
     Indication: DENTAL OPERATION
     Dates: start: 20120331, end: 20120331

REACTIONS (3)
  - Cough [Not Recovered/Not Resolved]
  - Artificial crown procedure [Unknown]
  - Headache [Not Recovered/Not Resolved]
